FAERS Safety Report 9796017 (Version 2)
Quarter: 2014Q1

REPORT INFORMATION
  Report Type: Spontaneous
  Country: US (occurrence: US)
  Receive Date: 20140103
  Receipt Date: 20140103
  Transmission Date: 20141002
  Serious: No
  Sender: FDA-Public Use
  Company Number: US-GILEAD-2010-0034062

PATIENT
  Sex: Female

DRUGS (2)
  1. CAYSTON [Suspect]
     Indication: CYSTIC FIBROSIS
     Route: 055
  2. AMITIZA [Concomitant]

REACTIONS (1)
  - Chest pain [Recovered/Resolved]
